FAERS Safety Report 4698443-4 (Version None)
Quarter: 2005Q2

REPORT INFORMATION
  Report Type: 
  Country: None (occurrence: None)
  Receive Date: 20050622
  Receipt Date: 20050608
  Transmission Date: 20051028
  Serious: Yes (Disabling, Other)
  Sender: FDA-Public Use
  Company Number: 2004107918

PATIENT
  Age: 55 Year
  Sex: Male
  Weight: 106.5953 kg

DRUGS (8)
  1. DEPO-MEDROL [Suspect]
     Indication: BACK PAIN
     Dosage: 80 MG (80 MG) EPIDURAL
     Route: 008
     Dates: start: 20040628, end: 20040818
  2. DEPO-MEDROL [Suspect]
     Indication: LUMBAR RADICULOPATHY
     Dosage: 80 MG (80 MG) EPIDURAL
     Route: 008
     Dates: start: 20040628, end: 20040818
  3. ALTACE [Concomitant]
  4. ZOCOR [Concomitant]
  5. SODIUM CHLORIDE [Concomitant]
  6. ZANAFLEX [Concomitant]
  7. VICODIN [Concomitant]
  8. CELEBREX [Concomitant]

REACTIONS (11)
  - CHILLS [None]
  - DURAL TEAR [None]
  - FATIGUE [None]
  - FEELING ABNORMAL [None]
  - HEADACHE [None]
  - HYPERHIDROSIS [None]
  - HYPOAESTHESIA EYE [None]
  - NAUSEA [None]
  - PYREXIA [None]
  - RASH [None]
  - THERAPY NON-RESPONDER [None]
